FAERS Safety Report 8951224 (Version 1)
Quarter: 2012Q4

REPORT INFORMATION
  Report Type: 
  Country: FR (occurrence: FR)
  Receive Date: 20121207
  Receipt Date: 20121207
  Transmission Date: 20130627
  Serious: Yes (Hospitalization)
  Sender: FDA-Public Use
  Company Number: FR-009507513-1212FRA002529

PATIENT
  Age: 63 Year
  Sex: Male

DRUGS (12)
  1. INVANZ [Suspect]
     Dosage: UNK
     Route: 042
     Dates: start: 20121103, end: 20121107
  2. VANCOMYCIN MYLAN [Concomitant]
     Dosage: UNK
     Dates: start: 20121028
  3. RIFADIN [Concomitant]
     Dosage: UNK
     Dates: start: 20121029
  4. GENTAMICINE [Concomitant]
     Dosage: UNK
     Dates: start: 20121028, end: 20121029
  5. KARDEGIC [Concomitant]
  6. APROVEL [Concomitant]
  7. METOPROLOL [Concomitant]
  8. CRESTOR [Concomitant]
  9. TRINIPATCH [Concomitant]
  10. AMLOR [Concomitant]
  11. METFORMIN [Concomitant]
  12. TEMESTA [Concomitant]

REACTIONS (2)
  - Drug eruption [Recovering/Resolving]
  - Eosinophilia [Unknown]
